FAERS Safety Report 5293929-6 (Version None)
Quarter: 2007Q2

REPORT INFORMATION
  Report Type: 
  Country: None (occurrence: None)
  Receive Date: 20070411
  Receipt Date: 20070405
  Transmission Date: 20071010
  Serious: Yes (Other)
  Sender: FDA-Public Use
  Company Number: FR-PFIZER INC-2007027507

PATIENT
  Age: 50 Year
  Sex: Male

DRUGS (1)
  1. VIAGRA [Suspect]
     Indication: ERECTILE DYSFUNCTION

REACTIONS (4)
  - DRUG INEFFECTIVE [None]
  - ERECTILE DYSFUNCTION [None]
  - FLUSHING [None]
  - PROSTATECTOMY [None]
